FAERS Safety Report 7040979-5 (Version None)
Quarter: 2010Q4

REPORT INFORMATION
  Report Type: 
  Country: None (occurrence: None)
  Receive Date: 20101007
  Receipt Date: 20100929
  Transmission Date: 20110411
  Serious: Yes (Other)
  Sender: FDA-Public Use
  Company Number: 2010SP049471

PATIENT
  Age: 44 Year
  Sex: Female

DRUGS (1)
  1. MARVELON 21 (DESOGESTREL/ETHINYLESTRADIOL /00570801/) [Suspect]
     Indication: PRODUCT USED FOR UNKNOWN INDICATION
     Dosage: 1 DF; QD; PO
     Route: 048
     Dates: start: 20090201

REACTIONS (2)
  - CEREBRAL INFARCTION [None]
  - RETINAL ARTERY OCCLUSION [None]
